FAERS Safety Report 8447520-0 (Version None)
Quarter: 2012Q2

REPORT INFORMATION
  Report Type: 
  Country: None (occurrence: None)
  Receive Date: 20120619
  Receipt Date: 20120607
  Transmission Date: 20120825
  Serious: Yes (Hospitalization, Other)
  Sender: FDA-Public Use
  Company Number: US-ELI_LILLY_AND_COMPANY-US201103007700

PATIENT
  Sex: Female

DRUGS (8)
  1. VITAMIN D [Concomitant]
     Dosage: 4000 DF, UNK
  2. ASPIRIN [Concomitant]
     Dosage: 81 MG, UNK
  3. FORTEO [Suspect]
     Dosage: 20 UG, QD
     Route: 065
     Dates: start: 20100101
  4. FORTEO [Suspect]
     Indication: OSTEOPOROSIS
     Dosage: 20 UG, QD
     Dates: start: 20100101
  5. CALCIUM [Concomitant]
     Dosage: 1200 MG, UNK
  6. FORTEO [Suspect]
     Dosage: 20 UG, QD
     Route: 065
     Dates: start: 20100101
  7. SIMVASTATIN [Concomitant]
     Dosage: 40 MG, UNK
  8. VITAMIN TAB [Concomitant]

REACTIONS (12)
  - MALAISE [None]
  - NONSPECIFIC REACTION [None]
  - SOMNOLENCE [None]
  - CONTUSION [None]
  - PRURITUS [None]
  - PAIN [None]
  - PANCREATIC CYST [None]
  - FALL [None]
  - THINKING ABNORMAL [None]
  - PANCREATITIS [None]
  - INFECTION [None]
  - ASTHENIA [None]
